FAERS Safety Report 6163740-2 (Version None)
Quarter: 2009Q2

REPORT INFORMATION
  Report Type: 
  Country: None (occurrence: None)
  Receive Date: 20090420
  Receipt Date: 20090420
  Transmission Date: 20091009
  Serious: Yes (Other)
  Sender: FDA-Public Use
  Company Number: None

PATIENT
  Age: 18 Year
  Sex: Female
  Weight: 54.4316 kg

DRUGS (3)
  1. YAZ [Suspect]
     Indication: CONTRACEPTION
     Dosage: ONE DAILY PO
     Route: 048
     Dates: start: 20080201, end: 20090201
  2. PROZAC [Concomitant]
  3. L-LYSINE [Concomitant]

REACTIONS (1)
  - BLOOD PRESSURE INCREASED [None]
